FAERS Safety Report 17825810 (Version 1)
Quarter: 2020Q2

REPORT INFORMATION
  Report Type: Spontaneous
  Country: US (occurrence: US)
  Receive Date: 20200526
  Receipt Date: 20200526
  Transmission Date: 20200714
  Serious: Yes (Hospitalization)
  Sender: FDA-Public Use
  Company Number: US-PFIZER INC-2020205362

PATIENT
  Age: 82 Year
  Sex: Male
  Weight: 73.94 kg

DRUGS (1)
  1. AMIODARONE HCL [Suspect]
     Active Substance: AMIODARONE HYDROCHLORIDE
     Dosage: UNK UNK, 3X/DAY, (TOLD TO CUT SO CAN TAKE IT THREE TIMES A DAY, MORNING, NOON, EVENING)

REACTIONS (1)
  - Swelling [Recovering/Resolving]
